FAERS Safety Report 14920806 (Version 1)
Quarter: 2018Q2

REPORT INFORMATION
  Report Type: Spontaneous
  Country: BR (occurrence: BR)
  Receive Date: 20180521
  Receipt Date: 20180521
  Transmission Date: 20180711
  Serious: Yes (Hospitalization, Other)
  Sender: FDA-Public Use
  Company Number: BR-MYLANLABS-2018M1032851

PATIENT
  Age: 35 Year
  Sex: Male

DRUGS (3)
  1. SALINE                             /00075401/ [Concomitant]
     Active Substance: SODIUM CHLORIDE
     Indication: PRODUCT USED FOR UNKNOWN INDICATION
     Route: 042
  2. ESMOLOL [Suspect]
     Active Substance: ESMOLOL HYDROCHLORIDE
     Indication: PRODUCT USED FOR UNKNOWN INDICATION
     Route: 042
  3. AMOXICILLIN SODIUM AND CLAVULANATE POTASSIUM [Concomitant]
     Active Substance: AMOXICILLIN\CLAVULANATE POTASSIUM
     Indication: SINUSITIS
     Route: 065

REACTIONS (8)
  - Condition aggravated [Recovering/Resolving]
  - Rhabdomyolysis [Recovering/Resolving]
  - Coagulopathy [Recovering/Resolving]
  - Somnolence [Recovered/Resolved]
  - Heat stroke [Recovering/Resolving]
  - Coma [Recovered/Resolved]
  - Thrombocytopenia [Recovering/Resolving]
  - Acute hepatic failure [Recovering/Resolving]
